FAERS Safety Report 9186716 (Version 1)
Quarter: 2012Q4

REPORT INFORMATION
  Report Type: 
  Country: US (occurrence: US)
  Receive Date: 20121102
  Receipt Date: 20121102
  Transmission Date: 20130627
  Serious: No
  Sender: FDA-Public Use
  Company Number: US-BAYER-2012-114951

PATIENT
  Age: 26 Year
  Sex: Male
  Weight: 88.44 kg

DRUGS (1)
  1. ALEVE CAPLET/TABLET,MIDOL EXTENDED RELIEF CAPLET [Suspect]
     Indication: PAIN
     Dosage: 2 DF, BID
     Route: 048
     Dates: start: 20120813

REACTIONS (1)
  - No adverse event [None]
